FAERS Safety Report 18889808 (Version 2)
Quarter: 2021Q1

REPORT INFORMATION
  Report Type: Report from Study
  Country: PA (occurrence: PA)
  Receive Date: 20210213
  Receipt Date: 20210219
  Transmission Date: 20210420
  Serious: Yes (Other)
  Sender: FDA-Public Use
  Company Number: PHHY2019PA004328

PATIENT
  Sex: Female
  Weight: 47.62 kg

DRUGS (4)
  1. GALVUS MET [Suspect]
     Active Substance: METFORMIN HYDROCHLORIDE\VILDAGLIPTIN
     Indication: TYPE 2 DIABETES MELLITUS
     Dosage: 1 DF (METFORMIN 500 MG, VILDAGLIPTIN 50 MG), UNK
     Route: 065
  2. GALVUS MET [Suspect]
     Active Substance: METFORMIN HYDROCHLORIDE\VILDAGLIPTIN
     Dosage: 2 DF, QD (50/100) AS REPORTED
     Route: 065
  3. EXFORGE [Suspect]
     Active Substance: AMLODIPINE BESYLATE\VALSARTAN
     Indication: PRODUCT USED FOR UNKNOWN INDICATION
     Dosage: UNK
     Route: 065
  4. GALVUS MET [Suspect]
     Active Substance: METFORMIN HYDROCHLORIDE\VILDAGLIPTIN
     Dosage: 1 DF (METFORMIN 1000 MG, VILDAGLIPTIN 50 MG), UNK
     Route: 065
     Dates: start: 201106

REACTIONS (8)
  - Memory impairment [Unknown]
  - Dementia Alzheimer^s type [Unknown]
  - Blood glucose increased [Unknown]
  - Gait inability [Unknown]
  - Blood cholesterol increased [Unknown]
  - Cerebral ischaemia [Unknown]
  - Cognitive disorder [Unknown]
  - Speech disorder [Unknown]

NARRATIVE: CASE EVENT DATE: 2013
